FAERS Safety Report 5718037-9 (Version None)
Quarter: 2008Q2

REPORT INFORMATION
  Report Type: 
  Country: None (occurrence: None)
  Receive Date: 20080425
  Receipt Date: 20080422
  Transmission Date: 20081010
  Serious: Yes (Hospitalization)
  Sender: FDA-Public Use
  Company Number: FR-RB-3517-2006

PATIENT
  Age: 33 Year
  Sex: Female
  Weight: 78 kg

DRUGS (2)
  1. SUBUTEX [Suspect]
     Dosage: 6 - 8 MG QD
     Route: 048
  2. SUBUTEX [Suspect]
     Dosage: 2 - 3 INJECTIONS  QD
     Route: 042
     Dates: start: 20050101

REACTIONS (4)
  - DRUG EXPOSURE DURING PREGNANCY [None]
  - INTENTIONAL DRUG MISUSE [None]
  - LYMPHOEDEMA [None]
  - OEDEMA PERIPHERAL [None]
